FAERS Safety Report 9363680 (Version 1)
Quarter: 2013Q2

REPORT INFORMATION
  Report Type: Spontaneous
  Country: US (occurrence: US)
  Receive Date: 20130624
  Receipt Date: 20130624
  Transmission Date: 20140414
  Serious: No
  Sender: FDA-Public Use
  Company Number: 2013SP001653

PATIENT
  Age: 53 Year
  Sex: Female
  Weight: 108 kg

DRUGS (1)
  1. LATUDA [Suspect]
     Indication: SCHIZOPHRENIA
     Route: 048
     Dates: start: 20130520, end: 20130530

REACTIONS (1)
  - Rash [Recovered/Resolved]
